FAERS Safety Report 18146129 (Version 4)
Quarter: 2020Q3

REPORT INFORMATION
  Report Type: Spontaneous
  Country: CZ (occurrence: CZ)
  Receive Date: 20200813
  Receipt Date: 20200916
  Transmission Date: 20201103
  Serious: Yes (Other)
  Sender: FDA-Public Use
  Company Number: CZ-MYLANLABS-2020M1070595

PATIENT
  Age: 72 Year
  Sex: Female

DRUGS (9)
  1. PEMETREXED. [Suspect]
     Active Substance: PEMETREXED
     Indication: BRONCHIAL CARCINOMA
     Dosage: 500 MG /M2 WITH A 20 PERCENT DOSE REDUCTION
     Route: 065
     Dates: start: 201610, end: 201802
  2. CARBOPLATIN. [Suspect]
     Active Substance: CARBOPLATIN
     Indication: BRONCHIAL CARCINOMA
     Dosage: REDUCED BY 30%, CYCLE
     Route: 065
     Dates: start: 201512
  3. CARBOPLATIN. [Suspect]
     Active Substance: CARBOPLATIN
     Indication: NON-SMALL CELL LUNG CANCER
  4. CRIZOTINIB [Suspect]
     Active Substance: CRIZOTINIB
     Indication: LIVER DISORDER
     Dosage: AT A REDUCED DOSE OF 2X 200 MG
     Dates: start: 201812
  5. PEMETREXED. [Suspect]
     Active Substance: PEMETREXED
     Indication: NON-SMALL CELL LUNG CANCER
  6. GEMCITABINE. [Suspect]
     Active Substance: GEMCITABINE
     Indication: NON-SMALL CELL LUNG CANCER
     Dosage: UNK
     Route: 065
     Dates: start: 201512
  7. PACLITAXEL. [Suspect]
     Active Substance: PACLITAXEL
     Indication: OVARIAN CANCER
     Dosage: UNK
     Route: 065
     Dates: start: 1995, end: 1996
  8. GEMCITABINE. [Suspect]
     Active Substance: GEMCITABINE
     Indication: BRONCHIAL CARCINOMA
     Dosage: ONE CYCLE (DOSE REDUCED TO MINUS 30 PERCENT)
     Route: 065
     Dates: start: 201512
  9. CARBOPLATIN. [Suspect]
     Active Substance: CARBOPLATIN
     Indication: OVARIAN CANCER
     Dosage: UNK
     Dates: start: 1995, end: 1996

REACTIONS (10)
  - Transaminases increased [Unknown]
  - Bronchial carcinoma [Unknown]
  - Disease progression [Unknown]
  - Condition aggravated [Unknown]
  - Therapy partial responder [Unknown]
  - Hepatotoxicity [Recovered/Resolved]
  - Thrombocytopenia [Recovered/Resolved]
  - Neutropenia [Recovered/Resolved]
  - Leukopenia [Recovered/Resolved]
  - Off label use [Unknown]

NARRATIVE: CASE EVENT DATE: 201511
